FAERS Safety Report 5163448-6 (Version None)
Quarter: 2006Q4

REPORT INFORMATION
  Report Type: 
  Country: None (occurrence: None)
  Receive Date: 20061121
  Receipt Date: 20061113
  Transmission Date: 20070319
  Serious: Yes (Other)
  Sender: FDA-Public Use
  Company Number: 2006139880

PATIENT
  Age: 25 Year
  Sex: Male
  Weight: 113.3993 kg

DRUGS (1)
  1. DRAMAMINE [Suspect]
     Dosage: 2 BOTLES WITHIN ONE HOUR, ORAL
     Route: 048
     Dates: start: 20061113

REACTIONS (1)
  - HALLUCINATION [None]
